FAERS Safety Report 19274356 (Version 1)
Quarter: 2021Q2

REPORT INFORMATION
  Report Type: Spontaneous
  Country: US (occurrence: US)
  Receive Date: 20210519
  Receipt Date: 20210519
  Transmission Date: 20210717
  Serious: Yes (Life-Threatening, Other)
  Sender: FDA-Public Use
  Company Number: None

PATIENT
  Age: 73 Year
  Sex: Male
  Weight: 83.91 kg

DRUGS (15)
  1. TICAGRELOR ? BILINTA [Concomitant]
  2. E 200 [Concomitant]
  3. ELIQUIS [Concomitant]
     Active Substance: APIXABAN
  4. POTASSIUM COMPLEX [Concomitant]
  5. REPATHA [Suspect]
     Active Substance: EVOLOCUMAB
     Indication: ANTICOAGULANT THERAPY
     Route: 058
     Dates: start: 20200606, end: 20201010
  6. KREBS MAGNESIUM [Concomitant]
  7. VITAMIN C [Concomitant]
     Active Substance: ASCORBIC ACID
  8. LISINOPRIL. [Concomitant]
     Active Substance: LISINOPRIL
  9. SOTALOL. [Concomitant]
     Active Substance: SOTALOL
  10. VITAMIN D3 [Concomitant]
     Active Substance: CHOLECALCIFEROL
  11. HYDROCHOROTHIAZIDE [Concomitant]
     Active Substance: HYDROCHLOROTHIAZIDE
  12. ASPIRIN. [Concomitant]
     Active Substance: ASPIRIN
  13. VITAMIN D3 [Concomitant]
     Active Substance: CHOLECALCIFEROL
  14. ASPIRIN. [Concomitant]
     Active Substance: ASPIRIN
  15. EVOLOCUM [Concomitant]

REACTIONS (2)
  - Asthenia [None]
  - Cognitive disorder [None]
